FAERS Safety Report 24413547 (Version 2)
Quarter: 2024Q4

REPORT INFORMATION
  Report Type: Spontaneous
  Country: JP (occurrence: JP)
  Receive Date: 20241008
  Receipt Date: 20241011
  Transmission Date: 20250115
  Serious: Yes (Hospitalization)
  Sender: Waylis
  Company Number: JP-WAYLIS-2024-JP-000275

PATIENT
  Age: 90 Year
  Sex: Male

DRUGS (5)
  1. RABEPRAZOLE SODIUM [Suspect]
     Active Substance: RABEPRAZOLE SODIUM
     Indication: Product used for unknown indication
     Dosage: 10.0 MILLIGRAM(S) (10 MILLIGRAM(S), 1 IN 1 DAY)
     Route: 048
  2. URSODIOL [Concomitant]
     Active Substance: URSODIOL
     Indication: Product used for unknown indication
     Dosage: 200.0 MILLIGRAM(S) (100 MILLIGRAM(S), 1 IN 12 HOUR)
     Route: 048
  3. TSUMURA JUNCHOTO EXTRACT [Concomitant]
     Indication: Product used for unknown indication
     Dosage: (200 MILLIGRAM(S))
  4. CYCLOSPORINE [Concomitant]
     Active Substance: CYCLOSPORINE
     Indication: Product used for unknown indication
     Dosage: 50.0 MILLIGRAM(S) (50 MILLIGRAM(S), 1 IN 1 DAY)
     Route: 048
  5. LOXOPROFEN SODIUM [Concomitant]
     Active Substance: LOXOPROFEN SODIUM
     Dosage: (60 MILLIGRAM(S))
     Route: 050

REACTIONS (1)
  - Obstructive pancreatitis [Unknown]
